FAERS Safety Report 12964145 (Version 2)
Quarter: 2017Q2

REPORT INFORMATION
  Report Type: Spontaneous
  Country: DE (occurrence: DE)
  Receive Date: 20161122
  Receipt Date: 20170406
  Transmission Date: 20170830
  Serious: Yes (Death)
  Sender: FDA-Public Use
  Company Number: DE-SA-2016SA210993

PATIENT
  Age: 81 Year
  Sex: Male

DRUGS (20)
  1. CLOPIDOGREL BISULFATE. [Suspect]
     Active Substance: CLOPIDOGREL BISULFATE
     Indication: STENT PLACEMENT
     Route: 048
     Dates: start: 201610
  2. ACC [Concomitant]
     Active Substance: ACETYLCYSTEINE
     Route: 042
     Dates: end: 20161021
  3. CISATRACURIUM. [Concomitant]
     Active Substance: CISATRACURIUM
     Route: 065
     Dates: end: 20161021
  4. CLOPIDOGREL BISULFATE. [Suspect]
     Active Substance: CLOPIDOGREL BISULFATE
     Indication: STENT PLACEMENT
     Route: 048
     Dates: start: 201610
  5. RINGER-ACETAT [Concomitant]
     Route: 065
     Dates: end: 20161021
  6. SODIUM CHLORIDE. [Concomitant]
     Active Substance: SODIUM CHLORIDE
     Route: 065
     Dates: end: 20161021
  7. PIRITRAMIDE [Concomitant]
     Active Substance: PIRITRAMIDE
     Dosage: DOSE: 1-2 ML/H
     Route: 065
     Dates: end: 20161021
  8. PRADAXA [Suspect]
     Active Substance: DABIGATRAN ETEXILATE MESYLATE
     Indication: ATRIAL FIBRILLATION
     Route: 048
     Dates: end: 20161017
  9. PREDNISOLONE. [Concomitant]
     Active Substance: PREDNISOLONE
     Route: 048
  10. ATORVASTATIN [Concomitant]
     Active Substance: ATORVASTATIN
     Route: 065
  11. TAZOBACTAM/PIPERACILLIN [Concomitant]
     Route: 042
     Dates: end: 20161021
  12. NOVAMINSULFON [Concomitant]
     Active Substance: METAMIZOLE
     Dosage: FREQUENCY: 4 IN 2 DAYS?DAILY DOSE: 2000 MG MILLGRAM(S) EVERY 2 DAYS
     Route: 048
  13. NOREPINEPHRINE HYDROCHLORIDE [Concomitant]
     Route: 042
     Dates: end: 20161021
  14. MOVICOL [Concomitant]
     Active Substance: POLYETHYLENE GLYCOL 3350\POTASSIUM CHLORIDE\SODIUM BICARBONATE\SODIUM CHLORIDE
     Route: 065
     Dates: end: 20161021
  15. PANTOPRAZOL [Concomitant]
     Active Substance: PANTOPRAZOLE SODIUM
     Route: 042
     Dates: end: 20161021
  16. TRAMADOLOR [Concomitant]
     Active Substance: TRAMADOL
     Dosage: DAILY DOSE: 100 MG MILLGRAM(S) EVERY 2 DAYS?FREQUENCY: 2 IN 2 DAY
     Route: 048
  17. CLINDAMYCIN. [Concomitant]
     Active Substance: CLINDAMYCIN
     Route: 042
     Dates: end: 20161021
  18. PREDNISOLONE SODIUM SUCCINATE [Concomitant]
     Active Substance: PREDNISOLONE SODIUM SUCCINATE
     Route: 065
     Dates: end: 20161021
  19. FUROSEMID [Concomitant]
     Active Substance: FUROSEMIDE
     Route: 065
     Dates: end: 20161021
  20. PROPOFOL. [Concomitant]
     Active Substance: PROPOFOL
     Route: 065
     Dates: end: 20161021

REACTIONS (3)
  - Brain oedema [Fatal]
  - Intraventricular haemorrhage [Fatal]
  - Cerebral haemorrhage [Fatal]

NARRATIVE: CASE EVENT DATE: 20161021
